FAERS Safety Report 6855860-1 (Version None)
Quarter: 2010Q3

REPORT INFORMATION
  Report Type: 
  Country: None (occurrence: None)
  Receive Date: 20100719
  Receipt Date: 20071018
  Transmission Date: 20110219
  Serious: Yes (Other)
  Sender: FDA-Public Use
  Company Number: PFIZER INC-2007088246

PATIENT
  Sex: Female

DRUGS (4)
  1. CHANTIX [Suspect]
     Indication: SMOKING CESSATION THERAPY
     Dates: start: 20071015
  2. TOPAMAX [Concomitant]
     Indication: BIPOLAR DISORDER
  3. KLONOPIN [Concomitant]
     Indication: BIPOLAR DISORDER
  4. BENZTROPINE MESYLATE [Concomitant]
     Indication: BIPOLAR DISORDER

REACTIONS (1)
  - DEPRESSION [None]
